FAERS Safety Report 6923060-2 (Version None)
Quarter: 2010Q3

REPORT INFORMATION
  Report Type: 
  Country: None (occurrence: None)
  Receive Date: 20100811
  Receipt Date: 20100728
  Transmission Date: 20110219
  Serious: Yes (Death)
  Sender: FDA-Public Use
  Company Number: 2010AL000116

PATIENT

DRUGS (1)
  1. FOLOTYN [Suspect]

REACTIONS (1)
  - NEUTROPENIA [None]
